FAERS Safety Report 10011309 (Version 1)
Quarter: 2014Q1

REPORT INFORMATION
  Report Type: Spontaneous
  Country: US (occurrence: US)
  Receive Date: 20140314
  Receipt Date: 20140314
  Transmission Date: 20141002
  Serious: No
  Sender: FDA-Public Use
  Company Number: US-DRREDDYS-USA/USA/13/0035717

PATIENT
  Sex: Male

DRUGS (1)
  1. CETIRIZINE 10 MG [Suspect]
     Indication: HYPERSENSITIVITY
     Route: 048
     Dates: start: 2013

REACTIONS (1)
  - Blood pressure increased [Not Recovered/Not Resolved]
